FAERS Safety Report 6967202-1 (Version None)
Quarter: 2010Q3

REPORT INFORMATION
  Report Type: 
  Country: None (occurrence: None)
  Receive Date: 20100907
  Receipt Date: 20100825
  Transmission Date: 20110219
  Serious: No
  Sender: FDA-Public Use
  Company Number: KR-JNJFOC-20100801075

PATIENT
  Age: 70 Year
  Sex: Male

DRUGS (3)
  1. DURAGESIC-100 [Suspect]
     Indication: PAIN MANAGEMENT
     Dosage: ONE PATCH
     Route: 062
  2. DURAGESIC-100 [Suspect]
     Dosage: HALF PATCH
     Route: 062
  3. DURAGESIC-100 [Suspect]
     Dosage: HALF A PATCH
     Route: 062

REACTIONS (3)
  - DIZZINESS [None]
  - DRUG ADMINISTRATION ERROR [None]
  - NAUSEA [None]
